FAERS Safety Report 9344460 (Version 1)
Quarter: 2013Q2

REPORT INFORMATION
  Report Type: Spontaneous
  Country: US (occurrence: US)
  Receive Date: 20130612
  Receipt Date: 20130612
  Transmission Date: 20140414
  Serious: Yes (Death)
  Sender: FDA-Public Use
  Company Number: US-TEVA-411590USA

PATIENT
  Age: 51 Year
  Sex: Male
  Weight: 108.96 kg

DRUGS (1)
  1. PROAIR HFA [Suspect]
     Indication: LUNG DISORDER
     Route: 055

REACTIONS (1)
  - Death [Fatal]
